FAERS Safety Report 4389340-2 (Version None)
Quarter: 2004Q2

REPORT INFORMATION
  Report Type: 
  Country: None (occurrence: None)
  Receive Date: 20040628
  Receipt Date: 20040616
  Transmission Date: 20050107
  Serious: Yes (Hospitalization)
  Sender: FDA-Public Use
  Company Number: BE-JNJFOC-20040604372

PATIENT
  Age: 28 Year
  Sex: Female

DRUGS (8)
  1. REMICADE [Suspect]
     Indication: POLYARTHRITIS
     Dosage: INTRAVENOUS
     Route: 042
     Dates: start: 20010801
  2. METHOTREXATE [Concomitant]
  3. FOLIC ACID [Concomitant]
  4. PREDNISOLONE [Concomitant]
  5. APRAZOLAM (ALPRAZOLAM) [Concomitant]
  6. MICROGYNON (EUGYNON) [Concomitant]
  7. AMLODIPINE BESYLATE [Concomitant]
  8. TRANSTEC (BUPRENORPHINE) [Concomitant]

REACTIONS (5)
  - ANOREXIA [None]
  - ARTHRALGIA [None]
  - MALAISE [None]
  - PYELONEPHRITIS [None]
  - URINARY TRACT INFECTION [None]
